FAERS Safety Report 8550989 (Version 2)
Quarter: 2013Q2

REPORT INFORMATION
  Report Type: Spontaneous
  Country: FR (occurrence: FR)
  Receive Date: 20120508
  Receipt Date: 20130401
  Transmission Date: 20140414
  Serious: Yes (Hospitalization)
  Sender: FDA-Public Use
  Company Number: FR-PFIZER INC-2012107252

PATIENT
  Age: 32 Year
  Sex: Female

DRUGS (5)
  1. SOLU-MEDROL [Suspect]
     Indication: PARAESTHESIA
     Dosage: 1 G, 1X/DAY
     Route: 042
     Dates: start: 20120116, end: 20120120
  2. DIANE [Suspect]
     Dosage: 35 G, COATED TABLET
     Route: 048
     Dates: end: 20120126
  3. NEO-MERCAZOLE [Concomitant]
     Dosage: 20 MG, TABLET
     Route: 048
  4. LEVOTHYROX [Concomitant]
     Dosage: 25 G, SCORED TABLET
     Route: 048
  5. LAROXYL [Concomitant]

REACTIONS (1)
  - Pulmonary embolism [Recovered/Resolved]
